FAERS Safety Report 10189943 (Version 2)
Quarter: 2014Q2

REPORT INFORMATION
  Report Type: Report from Study
  Country: VE (occurrence: VE)
  Receive Date: 20140522
  Receipt Date: 20140522
  Transmission Date: 20141212
  Serious: Yes (Death, Hospitalization, Other)
  Sender: FDA-Public Use
  Company Number: VE-ABBVIE-13P-178-1096297-00

PATIENT
  Age: 63 Year
  Sex: Female
  Weight: 50 kg

DRUGS (5)
  1. HUMIRA [Suspect]
     Indication: RHEUMATOID ARTHRITIS
     Route: 058
     Dates: start: 20120328, end: 201207
  2. IZONIAZID [Concomitant]
     Indication: TUBERCULIN TEST POSITIVE
     Dates: start: 2011, end: 2012
  3. ARAVA [Concomitant]
     Indication: RHEUMATOID ARTHRITIS
     Route: 048
     Dates: start: 201003, end: 20130705
  4. PLAQUENIL [Concomitant]
     Indication: RHEUMATOID ARTHRITIS
     Route: 048
     Dates: start: 201103, end: 20130705
  5. CALCORT [Concomitant]
     Indication: RHEUMATOID ARTHRITIS
     Route: 048
     Dates: start: 2006, end: 20130705

REACTIONS (3)
  - Respiratory tract infection [Fatal]
  - Pancreatitis acute [Not Recovered/Not Resolved]
  - Tuberculin test positive [Unknown]
